FAERS Safety Report 17658112 (Version 2)
Quarter: 2020Q2

REPORT INFORMATION
  Report Type: Report from Study
  Country: US (occurrence: US)
  Receive Date: 20200411
  Receipt Date: 20200501
  Transmission Date: 20200713
  Serious: Yes (Other)
  Sender: FDA-Public Use
  Company Number: US-TEVA-2020-US-1222241

PATIENT
  Sex: Female

DRUGS (1)
  1. CLARAVIS [Suspect]
     Active Substance: ISOTRETINOIN
     Dosage: ALTERNATE DAYS AND BID EVERY 3RD DAY
     Route: 065
     Dates: start: 20190426, end: 20200320

REACTIONS (1)
  - Unintended pregnancy [Unknown]
